FAERS Safety Report 5833296-X (Version None)
Quarter: 2008Q3

REPORT INFORMATION
  Report Type: 
  Country: None (occurrence: None)
  Receive Date: 20080804
  Receipt Date: 20080804
  Transmission Date: 20090109
  Serious: Yes (Disabling)
  Sender: FDA-Public Use
  Company Number: None

PATIENT
  Age: 82 Year
  Sex: Male
  Weight: 76.2043 kg

DRUGS (1)
  1. LEVAQUIN [Suspect]
     Indication: BRONCHITIS
     Dosage: 750 MG 1 A DAY FOR 5 DAYS
     Dates: start: 20080331, end: 20080404

REACTIONS (5)
  - ABASIA [None]
  - GAIT DISTURBANCE [None]
  - TENDON RUPTURE [None]
  - WALKING AID USER [None]
  - WHEELCHAIR USER [None]
